FAERS Safety Report 9702831 (Version 1)
Quarter: 2013Q4

REPORT INFORMATION
  Report Type: Spontaneous
  Country: RU (occurrence: RU)
  Receive Date: 20131121
  Receipt Date: 20131121
  Transmission Date: 20140711
  Serious: Yes (Other)
  Sender: FDA-Public Use
  Company Number: RU-GLAXOSMITHKLINE-B0946881A

PATIENT
  Age: 35 Year
  Sex: Male

DRUGS (1)
  1. VOTRIENT [Suspect]
     Indication: METASTATIC RENAL CELL CARCINOMA
     Route: 065

REACTIONS (5)
  - Cardiac ventricular thrombosis [Recovered/Resolved]
  - Cardiovascular insufficiency [Recovered/Resolved]
  - Dyspnoea [Recovered/Resolved]
  - Blood pressure increased [Recovered/Resolved]
  - Ejection fraction decreased [Recovered/Resolved]
